FAERS Safety Report 9284192 (Version 2)
Quarter: 2013Q2

REPORT INFORMATION
  Report Type: Spontaneous
  Country: BE (occurrence: BE)
  Receive Date: 20130510
  Receipt Date: 20130611
  Transmission Date: 20140414
  Serious: Yes (Hospitalization)
  Sender: FDA-Public Use
  Company Number: BE-JNJFOC-20130502187

PATIENT
  Age: 66 Year
  Sex: Female
  Weight: 54 kg

DRUGS (9)
  1. INFLIXIMAB, RECOMBINANT [Suspect]
     Indication: RHEUMATOID ARTHRITIS
     Route: 042
     Dates: start: 20121126, end: 20121227
  2. BISOPROLOL [Concomitant]
     Indication: HYPERTENSION
     Route: 065
  3. INDAPAMIDE [Concomitant]
     Indication: HYPERTENSION
     Route: 065
  4. ALPRAZOLAM [Concomitant]
     Indication: AGITATION
     Route: 065
     Dates: start: 20121228
  5. STEOVIT D3 [Concomitant]
     Route: 065
     Dates: start: 20121228
  6. RAMIPRIL [Concomitant]
     Indication: HYPERTENSION
     Route: 065
     Dates: start: 20121228
  7. ZOLPIDEM [Concomitant]
     Route: 065
     Dates: start: 20121228
  8. ACETYLCYSTEINE [Concomitant]
     Route: 065
     Dates: start: 20121228
  9. BROMAZEPAM [Concomitant]
     Route: 065
     Dates: start: 20121228

REACTIONS (2)
  - Hypersensitivity [Recovered/Resolved]
  - Bundle branch block left [Unknown]
